FAERS Safety Report 25474572 (Version 3)
Quarter: 2025Q3

REPORT INFORMATION
  Report Type: Spontaneous
  Country: US (occurrence: US)
  Receive Date: 20250624
  Receipt Date: 20250703
  Transmission Date: 20251020
  Serious: Yes (Hospitalization)
  Sender: SANOFI AVENTIS
  Company Number: US-SA-2025SA174225

PATIENT
  Age: 69 Year
  Sex: Male
  Weight: 89.09 kg

DRUGS (8)
  1. DUPIXENT [Suspect]
     Active Substance: DUPILUMAB
     Indication: Dermatitis atopic
     Dosage: 300 MG, QOW
     Route: 058
  2. OMEPRAZOLE [Concomitant]
     Active Substance: OMEPRAZOLE
  3. COREG [Concomitant]
     Active Substance: CARVEDILOL
  4. FINASTERIDE [Concomitant]
     Active Substance: FINASTERIDE
  5. CELECOXIB [Concomitant]
     Active Substance: CELECOXIB
  6. TAMSULOSIN HYDROCHLORIDE [Concomitant]
     Active Substance: TAMSULOSIN HYDROCHLORIDE
  7. LIPITOR [Concomitant]
     Active Substance: ATORVASTATIN CALCIUM
  8. TELMISARTAN [Concomitant]
     Active Substance: TELMISARTAN

REACTIONS (10)
  - Dysuria [Not Recovered/Not Resolved]
  - Hot flush [Unknown]
  - Chills [Unknown]
  - Pain [Unknown]
  - Gout [Recovered/Resolved]
  - Benign prostatic hyperplasia [Not Recovered/Not Resolved]
  - Prostatomegaly [Not Recovered/Not Resolved]
  - Pain in extremity [Not Recovered/Not Resolved]
  - Injection site swelling [Not Recovered/Not Resolved]
  - Injection site pruritus [Not Recovered/Not Resolved]

NARRATIVE: CASE EVENT DATE: 20250101
